FAERS Safety Report 18072459 (Version 1)
Quarter: 2020Q3

REPORT INFORMATION
  Report Type: Spontaneous
  Country: US (occurrence: US)
  Receive Date: 20200725
  Receipt Date: 20200725
  Transmission Date: 20201103
  Serious: Yes (Hospitalization)
  Sender: FDA-Public Use
  Company Number: None

PATIENT

DRUGS (1)
  1. CISPLATIN (119875) [Suspect]
     Active Substance: CISPLATIN
     Dates: end: 20200603

REACTIONS (5)
  - Pyrexia [None]
  - Endometritis [None]
  - Sinus bradycardia [None]
  - Tumour associated fever [None]
  - Acute kidney injury [None]

NARRATIVE: CASE EVENT DATE: 20200604
